FAERS Safety Report 12554229 (Version 1)
Quarter: 2016Q3

REPORT INFORMATION
  Report Type: Spontaneous
  Country: FR (occurrence: FR)
  Receive Date: 20160713
  Receipt Date: 20160713
  Transmission Date: 20161109
  Serious: Yes (Hospitalization)
  Sender: FDA-Public Use
  Company Number: FR-SA-2016SA124894

PATIENT
  Age: 78 Year
  Sex: Male
  Weight: 56 kg

DRUGS (30)
  1. CALCIUM FOLINATE [Suspect]
     Active Substance: LEUCOVORIN CALCIUM
     Route: 042
     Dates: start: 20160512, end: 20160513
  2. COUMADIN [Concomitant]
     Active Substance: WARFARIN SODIUM
  3. ARANESP [Concomitant]
     Active Substance: DARBEPOETIN ALFA
  4. FOLIC ACID. [Concomitant]
     Active Substance: FOLIC ACID
  5. FUMAFER [Concomitant]
     Active Substance: FERROUS FUMARATE
  6. STILNOX [Concomitant]
     Active Substance: ZOLPIDEM TARTRATE
  7. CEFOTAXIME [Concomitant]
     Active Substance: CEFOTAXIME SODIUM
     Dates: start: 20160529, end: 20160530
  8. ARAVA [Suspect]
     Active Substance: LEFLUNOMIDE
     Route: 048
     Dates: end: 20160525
  9. XARELTO [Concomitant]
     Active Substance: RIVAROXABAN
     Dates: start: 201508
  10. LASILIX [Concomitant]
     Active Substance: FUROSEMIDE
  11. CEFOTAXIME [Concomitant]
     Active Substance: CEFOTAXIME SODIUM
     Route: 042
  12. FLUOROURACIL. [Suspect]
     Active Substance: FLUOROURACIL
     Dosage: 4500 MG OVER 48 HOURS FROM 12-13 / 05/16
     Route: 042
     Dates: start: 20160429, end: 20160430
  13. FLUOROURACIL. [Suspect]
     Active Substance: FLUOROURACIL
     Dosage: 4500 MG OVER 48 HOURS FROM 12-13 / 05/16
     Route: 042
     Dates: start: 20160512, end: 20160513
  14. KARDEGIC [Concomitant]
     Active Substance: ASPIRIN LYSINE
  15. TAZOCILLINE [Concomitant]
     Active Substance: PIPERACILLIN SODIUM\TAZOBACTAM SODIUM
     Indication: GASTROENTERITIS
  16. CALCIUM FOLINATE [Suspect]
     Active Substance: LEUCOVORIN CALCIUM
     Route: 042
     Dates: start: 20160429, end: 20160430
  17. CITALOPRAM [Concomitant]
     Active Substance: CITALOPRAM HYDROBROMIDE
  18. TRIATEC [Concomitant]
     Active Substance: RAMIPRIL
     Indication: CARDIAC FAILURE
  19. CLAFORAN [Concomitant]
     Active Substance: CEFOTAXIME SODIUM
     Indication: GASTROENTERITIS
  20. CORTANCYL [Concomitant]
     Active Substance: PREDNISONE
  21. BISOCE [Concomitant]
     Active Substance: BISOPROLOL
     Indication: CARDIAC FAILURE
  22. VITAMIN K [Concomitant]
     Active Substance: PHYTONADIONE
     Route: 042
  23. ARAVA [Suspect]
     Active Substance: LEFLUNOMIDE
     Route: 048
     Dates: start: 200201
  24. PREVISCAN [Concomitant]
     Active Substance: FLUINDIONE
  25. ZAMUDOL [Concomitant]
     Active Substance: TRAMADOL HYDROCHLORIDE
     Dosage: 100 LP 2 TIMES A DAY
  26. INNOHEP [Concomitant]
     Active Substance: TINZAPARIN SODIUM
     Route: 058
  27. FLAGYL [Concomitant]
     Active Substance: METRONIDAZOLE\METRONIDAZOLE HYDROCHLORIDE
     Indication: GASTROENTERITIS
     Route: 048
     Dates: end: 20160527
  28. CALCIDOSE [Concomitant]
     Active Substance: CALCIUM CARBONATE
     Dosage: 1 SACHET PER DAY
  29. INEXIUM [Concomitant]
     Active Substance: ESOMEPRAZOLE
  30. CALCIPARINE [Concomitant]
     Active Substance: HEPARIN CALCIUM
     Route: 058

REACTIONS (4)
  - Nausea [Recovered/Resolved]
  - Vomiting [Recovered/Resolved]
  - Diarrhoea [Recovering/Resolving]
  - Chills [Recovered/Resolved]

NARRATIVE: CASE EVENT DATE: 20160518
